FAERS Safety Report 13424635 (Version 1)
Quarter: 2017Q2

REPORT INFORMATION
  Report Type: Spontaneous
  Country: JP (occurrence: JP)
  Receive Date: 20170410
  Receipt Date: 20170410
  Transmission Date: 20170830
  Serious: Yes (Hospitalization, Other)
  Sender: FDA-Public Use
  Company Number: PHJP2017JP000695

PATIENT
  Age: 59 Year
  Sex: Female
  Weight: 49.6 kg

DRUGS (6)
  1. TEGRETOL [Suspect]
     Active Substance: CARBAMAZEPINE
     Indication: DEPRESSION
  2. JZOLOFT [Suspect]
     Active Substance: SERTRALINE HYDROCHLORIDE
     Indication: GLOSSODYNIA
     Dosage: 25 MG, UNK
     Route: 048
     Dates: start: 201606, end: 20161224
  3. VALHYDIO [Suspect]
     Active Substance: HYDROCHLOROTHIAZIDE\VALSARTAN
     Indication: HYPERTENSION
     Dosage: 1 DF, UNK
     Route: 048
     Dates: end: 20170104
  4. CYMBALTA [Suspect]
     Active Substance: DULOXETINE HYDROCHLORIDE
     Indication: GLOSSODYNIA
     Dosage: 20 MG, UNK
     Route: 048
     Dates: end: 20170102
  5. TEGRETOL [Suspect]
     Active Substance: CARBAMAZEPINE
     Indication: GLOSSODYNIA
     Dosage: 100 MG, UNK
     Route: 048
     Dates: start: 201606, end: 20161224
  6. AMALUET COMBINATION TABLETS [Suspect]
     Active Substance: AMLODIPINE BESYLATE\ATORVASTATIN CALCIUM
     Indication: HYPERTENSION
     Dosage: 1 DF, UNK
     Route: 048
     Dates: end: 20170104

REACTIONS (7)
  - Oral mucosal eruption [Unknown]
  - Hepatic function abnormal [Unknown]
  - Erythema [Unknown]
  - Stevens-Johnson syndrome [Not Recovered/Not Resolved]
  - Pyrexia [Unknown]
  - Pruritus [Unknown]
  - Product use in unapproved indication [Unknown]

NARRATIVE: CASE EVENT DATE: 20161224
